FAERS Safety Report 9870204 (Version 2)
Quarter: 2014Q1

REPORT INFORMATION
  Report Type: Report from Study
  Country: GB (occurrence: GB)
  Receive Date: 20140205
  Receipt Date: 20140227
  Transmission Date: 20141002
  Serious: Yes (Hospitalization, Other)
  Sender: FDA-Public Use
  Company Number: GB-BRISTOL-MYERS SQUIBB COMPANY-20101515

PATIENT
  Age: 73 Year
  Sex: Male

DRUGS (1)
  1. IPILIMUMAB [Suspect]
     Indication: METASTATIC MALIGNANT MELANOMA
     Dosage: 27DEC13
     Route: 042
     Dates: start: 20131212

REACTIONS (3)
  - Colitis [Unknown]
  - Diarrhoea [Recovered/Resolved]
  - Rectal haemorrhage [Recovered/Resolved with Sequelae]
